FAERS Safety Report 19468675 (Version 2)
Quarter: 2021Q3

REPORT INFORMATION
  Report Type: Spontaneous
  Country: US (occurrence: US)
  Receive Date: 20210628
  Receipt Date: 20210806
  Transmission Date: 20211014
  Serious: Yes (Hospitalization)
  Sender: FDA-Public Use
  Company Number: US-PFIZER INC-2021712968

PATIENT
  Sex: Male
  Weight: 129.27 kg

DRUGS (2)
  1. DOFETILIDE. [Suspect]
     Active Substance: DOFETILIDE
     Dosage: 500MCG ONE IN THE MORNING AND ONE IN THE EVENING, EVERY 12 HOURS
  2. TIKOSYN [Suspect]
     Active Substance: DOFETILIDE
     Indication: HEART RATE NORMAL
     Dosage: 500MCG ONE IN THE MORNING AND ONE IN THE EVENING, EVERY 12 HOURS.

REACTIONS (3)
  - Pain in extremity [Unknown]
  - Drug ineffective [Recovered/Resolved]
  - Musculoskeletal stiffness [Unknown]
